FAERS Safety Report 6751401-8 (Version None)
Quarter: 2010Q2

REPORT INFORMATION
  Report Type: 
  Country: None (occurrence: None)
  Receive Date: 20100602
  Receipt Date: 20100422
  Transmission Date: 20101027
  Serious: Yes (Other)
  Sender: FDA-Public Use
  Company Number: US-BAXTER-2010BH005218

PATIENT
  Age: 51 Year
  Sex: Male
  Weight: 112 kg

DRUGS (26)
  1. HEPARIN SODIUM INJECTION [Suspect]
     Indication: ANGIOGRAM
     Route: 042
     Dates: start: 20080211, end: 20080211
  2. HEPARIN SODIUM INJECTION [Suspect]
     Indication: CARDIOPULMONARY BYPASS
     Route: 042
     Dates: start: 20080211, end: 20080211
  3. HEPARIN SODIUM INJECTION [Suspect]
     Route: 042
     Dates: start: 20080214, end: 20080201
  4. HEPARIN SODIUM INJECTION [Suspect]
     Route: 042
     Dates: start: 20080214, end: 20080201
  5. PLAVIX [Concomitant]
     Indication: DRUG USE FOR UNKNOWN INDICATION
     Route: 065
  6. NORMAL SALINE [Concomitant]
     Indication: DRUG USE FOR UNKNOWN INDICATION
     Route: 065
  7. MORPHINE [Concomitant]
     Indication: DRUG USE FOR UNKNOWN INDICATION
     Route: 065
  8. PCA MED [Concomitant]
     Indication: DRUG USE FOR UNKNOWN INDICATION
     Route: 065
  9. LASIX [Concomitant]
     Indication: DRUG USE FOR UNKNOWN INDICATION
     Route: 065
  10. CEFAZOLIN [Concomitant]
     Indication: DRUG USE FOR UNKNOWN INDICATION
     Route: 065
  11. TORADOL [Concomitant]
     Indication: DRUG USE FOR UNKNOWN INDICATION
     Route: 042
  12. CLORAZEPATE DIPOTASSIUM [Concomitant]
     Indication: DRUG USE FOR UNKNOWN INDICATION
     Route: 048
  13. ASPIRIN [Concomitant]
     Indication: DRUG USE FOR UNKNOWN INDICATION
     Route: 065
  14. NITRO-BID OINTMENT [Concomitant]
     Indication: DRUG USE FOR UNKNOWN INDICATION
     Route: 061
  15. COLACE [Concomitant]
     Indication: DRUG USE FOR UNKNOWN INDICATION
     Route: 065
  16. FAMOTIDINE [Concomitant]
     Indication: DRUG USE FOR UNKNOWN INDICATION
     Route: 065
  17. METOPROLOL TARTRATE [Concomitant]
     Indication: DRUG USE FOR UNKNOWN INDICATION
     Route: 065
  18. LIPITOR [Concomitant]
     Indication: DRUG USE FOR UNKNOWN INDICATION
     Route: 065
  19. FENTANYL [Concomitant]
     Indication: DRUG USE FOR UNKNOWN INDICATION
     Route: 042
  20. SIMVASTATIN [Concomitant]
     Indication: DRUG USE FOR UNKNOWN INDICATION
     Route: 065
  21. NOVOLIN 70/30 [Concomitant]
     Indication: DRUG USE FOR UNKNOWN INDICATION
     Route: 065
  22. NOVOLIN 70/30 [Concomitant]
     Route: 065
  23. ZOLOFT [Concomitant]
     Indication: DRUG USE FOR UNKNOWN INDICATION
     Route: 065
  24. VERSED [Concomitant]
     Indication: DRUG USE FOR UNKNOWN INDICATION
     Route: 042
  25. LIDOCAINE [Concomitant]
     Indication: DRUG USE FOR UNKNOWN INDICATION
     Route: 058
  26. NITROGLYCERIN [Concomitant]
     Indication: DRUG USE FOR UNKNOWN INDICATION
     Route: 016

REACTIONS (2)
  - CEREBROVASCULAR ACCIDENT [None]
  - HYPOTENSION [None]
